APPROVED DRUG PRODUCT: CHLORDIAZEPOXIDE AND AMITRIPTYLINE HYDROCHLORIDE
Active Ingredient: AMITRIPTYLINE HYDROCHLORIDE; CHLORDIAZEPOXIDE
Strength: EQ 25MG BASE;10MG
Dosage Form/Route: TABLET;ORAL
Application: A070478 | Product #001
Applicant: USL PHARMA INC
Approved: Jan 12, 1988 | RLD: No | RS: No | Type: DISCN